FAERS Safety Report 5294469-0 (Version None)
Quarter: 2007Q2

REPORT INFORMATION
  Report Type: 
  Country: None (occurrence: None)
  Receive Date: 20070406
  Receipt Date: 20070329
  Transmission Date: 20071010
  Serious: Yes (Hospitalization)
  Sender: FDA-Public Use
  Company Number: 2007-00893

PATIENT
  Age: 72 Year
  Sex: Female
  Weight: 43.5 kg

DRUGS (5)
  1. VELCADE [Suspect]
     Indication: LUNG ADENOCARCINOMA
     Dosage: 1.60 MG/M2, UNK, IV BOLUS
     Route: 040
     Dates: start: 20060912, end: 20070220
  2. TAXOTERE [Suspect]
     Indication: LUNG ADENOCARCINOMA
     Dosage: 30.00 MG/M2, UNK, INTRAVENOUS
     Route: 042
     Dates: start: 20060912, end: 20061226
  3. ALPRAZOLAM [Concomitant]
  4. TRAZODONE HCL [Concomitant]
  5. XOPENEX (LEVOSALBUTAMOL) INHALER [Concomitant]

REACTIONS (1)
  - BLISTER [None]
